FAERS Safety Report 9748408 (Version 1)
Quarter: 2013Q4

REPORT INFORMATION
  Report Type: Spontaneous
  Country: GB (occurrence: None)
  Receive Date: 20131206
  Receipt Date: 20131206
  Transmission Date: 20140711
  Serious: Yes (Hospitalization)
  Sender: FDA-Public Use
  Company Number: AUR-APL-2013-10093

PATIENT
  Age: 53 Year
  Sex: Female

DRUGS (7)
  1. AMOXICILLIN (AMOXICILLIN) [Suspect]
     Indication: LOWER RESPIRATORY TRACT INFECTION
     Dosage: 1500MG (500 MG 3 IN 1 D), ORAL
     Route: 048
     Dates: start: 20131117, end: 20131117
  2. CODEINE (CODEINE) [Concomitant]
  3. ELLESTE-DUET (KLIOGEST) [Concomitant]
  4. LISINOPRIL (LISINOPRIL) [Concomitant]
  5. NAPROXEN (NAPROXEN) [Concomitant]
  6. PARACETAMOL (PARACETAMOL) [Concomitant]
  7. SIMVASTATIN (SIMVASTATIN) [Concomitant]

REACTIONS (3)
  - Rash [None]
  - Dyspnoea [None]
  - Wheezing [None]
